FAERS Safety Report 10605999 (Version 1)
Quarter: 2014Q4

REPORT INFORMATION
  Report Type: Spontaneous
  Country: FR (occurrence: None)
  Receive Date: 20141121
  Receipt Date: 20141121
  Transmission Date: 20150529
  Serious: Yes (Death, Hospitalization)
  Sender: FDA-Public Use
  Company Number: 2627012

PATIENT
  Age: 77 Year
  Sex: Male

DRUGS (17)
  1. BACTRIM [Concomitant]
     Active Substance: SULFAMETHOXAZOLE\TRIMETHOPRIM
  2. CORTANCYL [Concomitant]
     Active Substance: PREDNISONE
  3. GLYCEROL\PARAFFIN [Concomitant]
     Active Substance: GLYCERIN\PARAFFIN
  4. ZYLORIC [Concomitant]
     Active Substance: ALLOPURINOL
  5. DERMOVAL [Concomitant]
     Active Substance: CLOBETASOL
  6. LEDERFOLINE [Concomitant]
     Active Substance: LEUCOVORIN CALCIUM
  7. LASILIX [Concomitant]
     Active Substance: FUROSEMIDE
  8. EUPANTOL [Concomitant]
     Active Substance: PANTOPRAZOLE SODIUM
  9. UMULINE [Concomitant]
     Active Substance: INSULIN HUMAN
  10. ACUPAN [Concomitant]
     Active Substance: NEFOPAM HYDROCHLORIDE
  11. CACIT VITAMIN D3 [Concomitant]
     Active Substance: CALCIUM CARBONATE\CHOLECALCIFEROL
  12. IXPRIM [Concomitant]
     Active Substance: ACETAMINOPHEN\TRAMADOL HYDROCHLORIDE
  13. HYDROCORTISONE. [Concomitant]
     Active Substance: HYDROCORTISONE
  14. PENTOSTATIN. [Suspect]
     Active Substance: PENTOSTATIN
     Indication: T-CELL PROLYMPHOCYTIC LEUKAEMIA
     Route: 042
     Dates: start: 20111128, end: 20111213
  15. MABCAMPATH [Suspect]
     Active Substance: ALEMTUZUMAB
     Indication: T-CELL PROLYMPHOCYTIC LEUKAEMIA
     Dosage: (NOT OTHERWISE SPECIFIED)
     Route: 042
     Dates: start: 20110706, end: 20111122
  16. ZELITREX [Concomitant]
     Active Substance: VALACYCLOVIR HYDROCHLORIDE
  17. IMOVANE [Concomitant]
     Active Substance: ZOPICLONE

REACTIONS (10)
  - Acute kidney injury [None]
  - Thrombotic microangiopathy [None]
  - Nephroangiosclerosis [None]
  - Haemolytic uraemic syndrome [None]
  - Malignant neoplasm progression [None]
  - General physical health deterioration [None]
  - T-cell prolymphocytic leukaemia [None]
  - Renal vessel disorder [None]
  - Nervous system disorder [None]
  - Post procedural haematoma [None]

NARRATIVE: CASE EVENT DATE: 201107
